FAERS Safety Report 4769846-4 (Version None)
Quarter: 2005Q3

REPORT INFORMATION
  Report Type: 
  Country: None (occurrence: None)
  Receive Date: 20050907
  Receipt Date: 20050613
  Transmission Date: 20060218
  Serious: Yes (Other)
  Sender: FDA-Public Use
  Company Number: HQWYE477615JUN05

PATIENT
  Age: 80 Year
  Sex: Male
  Weight: 73.55 kg

DRUGS (4)
  1. PHOSPHOLINE IODIDE DROPS [Suspect]
     Indication: GLAUCOMA
     Dosage: 1 DROP 2 TIMES PER DAY IN THE LEFT EYE, OPHTHALMIC)
     Route: 047
     Dates: start: 20050610, end: 20050612
  2. XALATAN [Concomitant]
  3. COSOPT [Concomitant]
  4. ALPHAGAN [Concomitant]

REACTIONS (4)
  - EYE OEDEMA [None]
  - EYE PAIN [None]
  - RHINALGIA [None]
  - VISION BLURRED [None]
